FAERS Safety Report 9523647 (Version 1)
Quarter: 2013Q3

REPORT INFORMATION
  Report Type: Spontaneous
  Country: US (occurrence: US)
  Receive Date: 20130913
  Receipt Date: 20130913
  Transmission Date: 20140515
  Serious: Yes (Hospitalization)
  Sender: FDA-Public Use
  Company Number: US-BAYER-2013-107557

PATIENT
  Age: 66 Year
  Sex: Female

DRUGS (12)
  1. CIPROFLOXACIN [Suspect]
     Indication: URINARY TRACT INFECTION
  2. CLOZAPINE [Interacting]
     Indication: SCHIZOPHRENIA
     Dosage: 200 MG BEFORE MEALS AND AT BEDTIME
  3. CLOZAPINE [Interacting]
     Indication: SCHIZOPHRENIA
     Dosage: LOWER DOSE
  4. ESCITALOPRAM [Concomitant]
  5. LEVOTHYROXINE [Concomitant]
  6. BUSPIRONE [Concomitant]
  7. DONEPEZIL [Concomitant]
  8. OMEPRAZOLE [Concomitant]
  9. DILTIAZEM [Concomitant]
  10. ACETAMINOPHEN [Concomitant]
  11. AZITHROMYCIN [Concomitant]
     Indication: PNEUMONIA BACTERIAL
     Dosage: 250 MG, BID
     Route: 048
  12. AMOXICILLIN [Concomitant]
     Indication: URINARY TRACT INFECTION
     Dosage: 500 MG, TID
     Route: 048

REACTIONS (2)
  - Neuroleptic malignant syndrome [Recovered/Resolved]
  - Drug interaction [None]
